FAERS Safety Report 7042884-7 (Version None)
Quarter: 2010Q4

REPORT INFORMATION
  Report Type: 
  Country: None (occurrence: None)
  Receive Date: 20101013
  Receipt Date: 20100104
  Transmission Date: 20110411
  Serious: No
  Sender: FDA-Public Use
  Company Number: US-ASTRAZENECA-2010SE00168

PATIENT
  Age: 84 Year
  Sex: Male
  Weight: 69.9 kg

DRUGS (9)
  1. SYMBICORT [Suspect]
     Dosage: 160/4.5, 2 PUFFS BID FOR 2 WEEKS
     Route: 055
  2. PLAVIX [Concomitant]
  3. POTASSIUM CHLORIDE [Concomitant]
  4. SIMVASTATIN [Concomitant]
  5. METOPROLOL [Concomitant]
  6. ZOLPIDEM [Concomitant]
  7. METOLAZONE [Concomitant]
  8. METANX [Concomitant]
  9. VITAMINS [Concomitant]

REACTIONS (1)
  - WEIGHT INCREASED [None]
